FAERS Safety Report 6164147-4 (Version None)
Quarter: 2009Q2

REPORT INFORMATION
  Report Type: 
  Country: None (occurrence: None)
  Receive Date: 20090422
  Receipt Date: 20090413
  Transmission Date: 20091009
  Serious: Yes (Hospitalization)
  Sender: FDA-Public Use
  Company Number: GB-PFIZER INC-2009196723

PATIENT

DRUGS (4)
  1. METHYLPREDNISOLONE AND METHYLPREDNISOLONE ACETATE AND METHYLPREDNISOLO [Suspect]
     Dosage: 100 MG, UNK
  2. CYCLOPHOSPHAMIDE [Suspect]
     Dosage: 500 MG, UNK
     Route: 042
  3. MESNA [Suspect]
     Indication: TEMPORAL ARTERITIS
  4. RITUXIMAB [Suspect]
     Indication: TEMPORAL ARTERITIS
     Dosage: 1 G, UNK

REACTIONS (2)
  - LUNG CONSOLIDATION [None]
  - RESPIRATORY FAILURE [None]
